FAERS Safety Report 8014376-X (Version None)
Quarter: 2011Q4

REPORT INFORMATION
  Report Type: 
  Country: None (occurrence: None)
  Receive Date: 20111229
  Receipt Date: 20111223
  Transmission Date: 20120403
  Serious: Yes (Death, Hospitalization)
  Sender: FDA-Public Use
  Company Number: US-SANOFI-AVENTIS-2011SA073458

PATIENT
  Age: 75 Year
  Sex: Male
  Weight: 92.52 kg

DRUGS (12)
  1. VICODIN [Concomitant]
  2. COMPAZINE [Concomitant]
     Dates: start: 20110809
  3. CHLORPROMAZINE [Concomitant]
  4. FUROSEMIDE [Concomitant]
  5. DEXAMETHASONE [Concomitant]
     Dates: start: 20110803
  6. KLOR-CON [Concomitant]
  7. SIMVASTATIN [Concomitant]
  8. ISOSORBIDE MONONITRATE [Concomitant]
  9. DOCETAXEL [Suspect]
     Route: 042
     Dates: start: 20110804, end: 20110804
  10. OXYCODONE HCL [Concomitant]
     Dates: start: 20110808
  11. DIGOXIN [Concomitant]
     Dates: start: 20110813
  12. METOPROLOL SUCCINATE [Concomitant]
     Dates: start: 20110813

REACTIONS (29)
  - FEMUR FRACTURE [None]
  - NEUTROPENIA [None]
  - SPINAL OSTEOARTHRITIS [None]
  - APNOEA [None]
  - CONDITION AGGRAVATED [None]
  - VOMITING [None]
  - HYPERCALCAEMIA [None]
  - CARDIOMEGALY [None]
  - PULSE ABSENT [None]
  - NAUSEA [None]
  - ACUTE PRERENAL FAILURE [None]
  - ATRIAL FIBRILLATION [None]
  - CARDIAC FAILURE CONGESTIVE [None]
  - CARDIO-RESPIRATORY ARREST [None]
  - HYPOTENSION [None]
  - PLATELET COUNT DECREASED [None]
  - DIZZINESS [None]
  - HYPOPHAGIA [None]
  - GROIN PAIN [None]
  - FALL [None]
  - PRESYNCOPE [None]
  - ARTHRALGIA [None]
  - DEHYDRATION [None]
  - WHITE BLOOD CELL COUNT DECREASED [None]
  - BLOOD ALKALINE PHOSPHATASE INCREASED [None]
  - ASTHENIA [None]
  - BODY TEMPERATURE DECREASED [None]
  - HEART RATE DECREASED [None]
  - OXYGEN SATURATION DECREASED [None]
